FAERS Safety Report 4505459-7 (Version None)
Quarter: 2004Q4

REPORT INFORMATION
  Report Type: 
  Country: None (occurrence: None)
  Receive Date: 20041119
  Receipt Date: 20041111
  Transmission Date: 20050328
  Serious: Yes (Hospitalization)
  Sender: FDA-Public Use
  Company Number: PHBS2004CH15149

PATIENT
  Age: 87 Year
  Sex: Female

DRUGS (9)
  1. TEGRETOL [Suspect]
     Indication: TRIGEMINAL NEURALGIA
     Dosage: 400 MG/D
     Route: 065
     Dates: start: 20040918, end: 20041021
  2. PONSTAN [Suspect]
     Indication: POST PROCEDURAL PAIN
     Route: 065
     Dates: start: 20041014, end: 20041019
  3. COVERSUM [Concomitant]
     Indication: HYPERTENSION
     Dosage: 4 MG/D
     Route: 065
  4. ELTROXIN [Concomitant]
     Indication: HYPOTHYROIDISM
     Dosage: 0.1 MG/D
     Route: 065
  5. PANTOZOL [Concomitant]
     Dosage: 20 MG/D
     Route: 065
  6. SPASMO-CANULASE [Concomitant]
     Dosage: 2 TABLETS/D
     Route: 048
  7. CIPRALEX [Concomitant]
     Dosage: 10 MG/D
     Route: 065
  8. SURMONTIL [Concomitant]
     Route: 065
  9. TEMESTA [Concomitant]
     Route: 065

REACTIONS (7)
  - ORAL MUCOSAL DISORDER [None]
  - OSTEOSYNTHESIS [None]
  - POST PROCEDURAL PAIN [None]
  - RASH [None]
  - RASH MACULO-PAPULAR [None]
  - STEVENS-JOHNSON SYNDROME [None]
  - SWELLING FACE [None]
